FAERS Safety Report 5913120-7 (Version None)
Quarter: 2008Q4

REPORT INFORMATION
  Report Type: 
  Country: None (occurrence: None)
  Receive Date: 20081006
  Receipt Date: 20080923
  Transmission Date: 20090506
  Serious: Yes (Life-Threatening, Hospitalization)
  Sender: FDA-Public Use
  Company Number: B0477235A

PATIENT
  Age: 60 Year
  Sex: Male

DRUGS (4)
  1. PAROXETINE HCL [Suspect]
     Indication: DEPRESSION
     Dosage: 10 MG/ PER DAY / ORAL
     Route: 048
     Dates: start: 20070611, end: 20070613
  2. METHOTRIMEPRAZINE TABLET (METHOTRIMEPRAZINE) [Suspect]
     Dates: start: 20070614
  3. MORPHINE [Concomitant]
  4. ACETAMINOPHEN [Concomitant]

REACTIONS (16)
  - ABNORMAL BEHAVIOUR [None]
  - ACTIVATION SYNDROME [None]
  - AGGRESSION [None]
  - AGITATION [None]
  - AKATHISIA [None]
  - HYPERVENTILATION [None]
  - INCOHERENT [None]
  - IRRITABILITY [None]
  - MENTAL DISORDER [None]
  - PSYCHOMOTOR HYPERACTIVITY [None]
  - RESTLESSNESS [None]
  - SEDATION [None]
  - SELF-INJURIOUS IDEATION [None]
  - SOMNOLENCE [None]
  - SPEECH DISORDER [None]
  - SUICIDAL IDEATION [None]
